FAERS Safety Report 12904444 (Version 1)
Quarter: 2016Q4

REPORT INFORMATION
  Report Type: Spontaneous
  Country: JP (occurrence: JP)
  Receive Date: 20161102
  Receipt Date: 20161102
  Transmission Date: 20170207
  Serious: Yes (Death, Hospitalization, Other)
  Sender: FDA-Public Use
  Company Number: JP-PFIZER INC-2016505970

PATIENT
  Age: 79 Year
  Sex: Male

DRUGS (1)
  1. METHOTREXATE SODIUM. [Suspect]
     Active Substance: METHOTREXATE SODIUM
     Indication: RHEUMATOID ARTHRITIS
     Dosage: 6 MG, WEEKLY
     Dates: start: 2008, end: 2016

REACTIONS (7)
  - Histiocytosis haematophagic [Fatal]
  - Multiple organ dysfunction syndrome [Fatal]
  - Renal failure [Unknown]
  - Diffuse large B-cell lymphoma [Fatal]
  - Pneumonia [Unknown]
  - Pancytopenia [Unknown]
  - Pyrexia [Not Recovered/Not Resolved]

NARRATIVE: CASE EVENT DATE: 201602
